FAERS Safety Report 6312802-5 (Version None)
Quarter: 2009Q3

REPORT INFORMATION
  Report Type: 
  Country: None (occurrence: None)
  Receive Date: 20090814
  Receipt Date: 20090803
  Transmission Date: 20100115
  Serious: Yes (Hospitalization)
  Sender: FDA-Public Use
  Company Number: 230674K09USA

PATIENT
  Age: 62 Year
  Sex: Female
  Weight: 75 kg

DRUGS (4)
  1. REBIF [Suspect]
     Indication: MULTIPLE SCLEROSIS
     Dosage: 44 MCG, 3 IN 1 WEEKS, SUBCUTANEOUS
     Route: 058
     Dates: start: 20081106, end: 20090108
  2. LASIX (FUROSEMIDE  /00032601/) [Concomitant]
  3. LOPID [Concomitant]
  4. TIZANIDINE HCL [Concomitant]

REACTIONS (4)
  - BRADYCARDIA [None]
  - HEPATITIS [None]
  - HYPOTENSION [None]
  - THROMBOCYTOPENIA [None]
